FAERS Safety Report 7670327-9 (Version None)
Quarter: 2011Q3

REPORT INFORMATION
  Report Type: 
  Country: None (occurrence: None)
  Receive Date: 20110809
  Receipt Date: 20110801
  Transmission Date: 20111222
  Serious: No
  Sender: FDA-Public Use
  Company Number: US-BIOGENIDEC-2010BI042044

PATIENT
  Sex: Female

DRUGS (1)
  1. TYSABRI [Suspect]
     Indication: MULTIPLE SCLEROSIS
     Route: 042
     Dates: start: 20101008, end: 20101209

REACTIONS (9)
  - MEMORY IMPAIRMENT [None]
  - STRESS [None]
  - FATIGUE [None]
  - LETHARGY [None]
  - ASTHENIA [None]
  - SYNCOPE [None]
  - SKIN ODOUR ABNORMAL [None]
  - HYPERSOMNIA [None]
  - DYSPNOEA [None]
